FAERS Safety Report 9752089 (Version 2)
Quarter: 2014Q1

REPORT INFORMATION
  Report Type: Spontaneous
  Country: JP (occurrence: JP)
  Receive Date: 20131213
  Receipt Date: 20140120
  Transmission Date: 20141002
  Serious: Yes (Death, Other)
  Sender: FDA-Public Use
  Company Number: PHHY2013JP145500

PATIENT
  Sex: Male
  Weight: 45 kg

DRUGS (5)
  1. SEEBRI BREEZHALER [Suspect]
     Indication: CHRONIC OBSTRUCTIVE PULMONARY DISEASE
     Dosage: 50 UG, QD
     Route: 055
     Dates: start: 20130610, end: 20131021
  2. SEEBRI BREEZHALER [Suspect]
     Dosage: 50 UG, QD
     Route: 055
     Dates: start: 20131101
  3. ONBREZ [Suspect]
     Indication: CHRONIC OBSTRUCTIVE PULMONARY DISEASE
     Dosage: 150 UG, QD
     Route: 055
     Dates: start: 20130902, end: 20131021
  4. ONBREZ [Suspect]
     Dosage: 150 UG, QD
     Route: 055
     Dates: start: 20131101
  5. SAWATENE [Concomitant]
     Indication: CHRONIC OBSTRUCTIVE PULMONARY DISEASE
     Dosage: 1000 MG, UNK
     Route: 048
     Dates: start: 20130921, end: 20131022

REACTIONS (3)
  - Death [Fatal]
  - Drowning [Unknown]
  - Dyspnoea [Recovered/Resolved]
